FAERS Safety Report 4662644-1 (Version None)
Quarter: 2005Q2

REPORT INFORMATION
  Report Type: 
  Country: None (occurrence: None)
  Receive Date: 20050506
  Receipt Date: 20041101
  Transmission Date: 20051028
  Serious: Yes (Hospitalization)
  Sender: FDA-Public Use
  Company Number: 2004UW22476

PATIENT
  Age: 82 Year
  Sex: Female
  Weight: 61.688 kg

DRUGS (9)
  1. NEXIUM [Suspect]
     Indication: DYSPEPSIA
     Dosage: 40 MG DAILY PO
     Route: 048
     Dates: start: 20041001, end: 20041001
  2. ADVIL [Concomitant]
  3. TYLENOL (CAPLET) [Concomitant]
  4. ATENOLOL [Concomitant]
  5. AVAPRO [Concomitant]
  6. NORVASC [Concomitant]
  7. SYNTHROID [Concomitant]
  8. LIPITOR [Concomitant]
  9. PREDNISONE [Concomitant]

REACTIONS (1)
  - GASTRIC HAEMORRHAGE [None]
